FAERS Safety Report 15059164 (Version 1)
Quarter: 2018Q2

REPORT INFORMATION
  Report Type: Report from Study
  Country: FR (occurrence: FR)
  Receive Date: 20180625
  Receipt Date: 20180625
  Transmission Date: 20180711
  Serious: Yes (Death)
  Sender: FDA-Public Use
  Company Number: FR-PFIZER INC-2018251495

PATIENT
  Age: 190 Month
  Sex: Male

DRUGS (1)
  1. SOMATROPIN. [Suspect]
     Active Substance: SOMATROPIN
     Indication: GROWTH HORMONE DEFICIENCY
     Dosage: UNK, DAILY (CONVENTIONAL DOSES) (MEAN GH DOSE 24.4 UG/KG/D)

REACTIONS (1)
  - Ewing^s sarcoma [Fatal]
